FAERS Safety Report 17748278 (Version 2)
Quarter: 2020Q2

REPORT INFORMATION
  Report Type: Spontaneous
  Country: US (occurrence: US)
  Receive Date: 20200505
  Receipt Date: 20200521
  Transmission Date: 20200714
  Serious: Yes (Hospitalization, Other)
  Sender: FDA-Public Use
  Company Number: US-PURDUE PHARMA-USA-2020-0152373

PATIENT
  Sex: Female

DRUGS (4)
  1. LORTAB [Suspect]
     Active Substance: ACETAMINOPHEN\HYDROCODONE BITARTRATE
     Indication: PAIN
     Route: 048
  2. MORPHINE SULFATE (SIMILAR TO NDA 19-516) [Suspect]
     Active Substance: MORPHINE SULFATE
     Indication: PAIN
     Route: 048
  3. PERCOCET [Suspect]
     Active Substance: ACETAMINOPHEN\OXYCODONE HYDROCHLORIDE
     Indication: PAIN
     Dosage: UNK
     Route: 048
     Dates: start: 2005
  4. OXYCONTIN [Suspect]
     Active Substance: OXYCODONE HYDROCHLORIDE
     Indication: PAIN
     Route: 048

REACTIONS (14)
  - Surgery [Unknown]
  - Hospitalisation [Unknown]
  - Spinal nerve stimulator implantation [Not Recovered/Not Resolved]
  - Drug withdrawal syndrome [Not Recovered/Not Resolved]
  - Medical device implantation [Not Recovered/Not Resolved]
  - Procedural pain [Unknown]
  - Malaise [Unknown]
  - Drug dependence [Unknown]
  - Spinal operation [Not Recovered/Not Resolved]
  - Personality change [Not Recovered/Not Resolved]
  - Screaming [Unknown]
  - Crying [Unknown]
  - Constipation [Not Recovered/Not Resolved]
  - Hysterectomy [Not Recovered/Not Resolved]

NARRATIVE: CASE EVENT DATE: 2005
